FAERS Safety Report 4365567-0 (Version None)
Quarter: 2004Q2

REPORT INFORMATION
  Report Type: 
  Country: None (occurrence: None)
  Receive Date: 20040526
  Receipt Date: 20011218
  Transmission Date: 20050107
  Serious: Yes (Death)
  Sender: FDA-Public Use
  Company Number: US-ROCHE-303947

PATIENT
  Age: 23 Year
  Sex: Male
  Weight: 90 kg

DRUGS (3)
  1. ACCUTANE [Suspect]
     Indication: ACNE
     Route: 048
     Dates: start: 20000615, end: 20000615
  2. ACCUTANE [Suspect]
     Route: 048
     Dates: start: 19980615, end: 19980615
  3. ACCUTANE [Suspect]
     Dosage: DOSAGE REGIMEN REPORTED AS 40 MG.
     Route: 048
     Dates: start: 19981124, end: 20000513

REACTIONS (6)
  - ANGER [None]
  - COMPLETED SUICIDE [None]
  - DEPRESSION [None]
  - DRY SKIN [None]
  - GUN SHOT WOUND [None]
  - LIP DRY [None]
